FAERS Safety Report 9124118 (Version 1)
Quarter: 2013Q1

REPORT INFORMATION
  Report Type: Spontaneous
  Country: US (occurrence: US)
  Receive Date: 20130227
  Receipt Date: 20130227
  Transmission Date: 20140127
  Serious: Yes (Other)
  Sender: FDA-Public Use
  Company Number: US-ASTRAZENECA-2013SE11128

PATIENT
  Age: 34 Year
  Sex: Female

DRUGS (2)
  1. ZOLADEX [Suspect]
     Indication: ENDOMETRIOSIS
     Dosage: MONTHLY
     Route: 058
     Dates: start: 20130213
  2. SINGULAIR [Concomitant]
     Indication: ASTHMA

REACTIONS (2)
  - Wheezing [Unknown]
  - Dyspnoea [Unknown]
